FAERS Safety Report 6824132-3 (Version None)
Quarter: 2010Q3

REPORT INFORMATION
  Report Type: 
  Country: None (occurrence: None)
  Receive Date: 20100708
  Receipt Date: 20070105
  Transmission Date: 20110219
  Serious: Yes (Other)
  Sender: FDA-Public Use
  Company Number: US-PFIZER INC-2006123523

PATIENT
  Sex: Male
  Weight: 86.18 kg

DRUGS (7)
  1. CHANTIX [Suspect]
     Indication: SMOKING CESSATION THERAPY
     Dates: start: 20061004
  2. LIPITOR [Concomitant]
  3. GLUCOPHAGE [Concomitant]
  4. NAPROSYN [Concomitant]
  5. ATENOLOL [Concomitant]
  6. GLYBURIDE [Concomitant]
  7. ZAROXOLYN [Concomitant]

REACTIONS (1)
  - HALLUCINATION [None]
